FAERS Safety Report 9187467 (Version 1)
Quarter: 2013Q1

REPORT INFORMATION
  Report Type: Spontaneous
  Country: FR (occurrence: FR)
  Receive Date: 20130325
  Receipt Date: 20130325
  Transmission Date: 20140127
  Serious: Yes (Other)
  Sender: FDA-Public Use
  Company Number: PHHY2013FR020534

PATIENT
  Age: 89 Year
  Sex: Male
  Weight: 75 kg

DRUGS (10)
  1. EXELON PATCH [Suspect]
     Indication: DEMENTIA ALZHEIMER^S TYPE
     Dosage: 4.6 MG/ 24 HRS
     Route: 062
     Dates: start: 20121206, end: 20130102
  2. EXELON PATCH [Suspect]
     Dosage: 9.5 MG/24 HRS
     Route: 062
     Dates: start: 20130103, end: 20130228
  3. ALDACTONE [Concomitant]
     Dosage: 25 MG, DAILY
  4. ALPRAZOLAM [Concomitant]
     Dosage: 0.25 MG, DAILY
  5. LEVOTHYROX [Concomitant]
     Dosage: 37 UG, DAILY
  6. NORSET [Concomitant]
     Dosage: 15 MG, DAILY
  7. PREVISCAN [Concomitant]
     Dosage: UNK UKN, (ON EVENING DEPENDING ON INR)
  8. FORLAX [Concomitant]
     Dosage: UNK UKN, UNK
  9. FUROSEMIDE [Concomitant]
     Dosage: 40 MG, DAILY
  10. HEMIGOXINE [Concomitant]
     Dosage: 1 DF, DAILY

REACTIONS (6)
  - Apathy [Unknown]
  - General physical health deterioration [Unknown]
  - Decreased appetite [Recovering/Resolving]
  - Abnormal behaviour [Not Recovered/Not Resolved]
  - International normalised ratio increased [Unknown]
  - C-reactive protein increased [Unknown]
